FAERS Safety Report 7190418-9 (Version None)
Quarter: 2010Q4

REPORT INFORMATION
  Report Type: 
  Country: None (occurrence: None)
  Receive Date: 20101221
  Receipt Date: 20101221
  Transmission Date: 20110411
  Serious: No
  Sender: FDA-Public Use
  Company Number: None

PATIENT
  Age: 67 Year
  Sex: Male
  Weight: 80 kg

DRUGS (3)
  1. LISINOPRIL [Suspect]
     Indication: DIABETES MELLITUS
     Dosage: 5 MG EVERY DAY PO
     Route: 048
     Dates: start: 20090812, end: 20101124
  2. LISINOPRIL [Suspect]
     Indication: HYPERTENSION
     Dosage: 5 MG EVERY DAY PO
     Route: 048
     Dates: start: 20090812, end: 20101124
  3. LISINOPRIL [Suspect]
     Indication: MYOCARDIAL ISCHAEMIA
     Dosage: 5 MG EVERY DAY PO
     Route: 048
     Dates: start: 20090812, end: 20101124

REACTIONS (1)
  - ANGIOEDEMA [None]
